FAERS Safety Report 8664887 (Version 2)
Quarter: 2013Q4

REPORT INFORMATION
  Report Type: Spontaneous
  Country: US (occurrence: US)
  Receive Date: 20120713
  Receipt Date: 20131022
  Transmission Date: 20140711
  Serious: Yes (Other)
  Sender: FDA-Public Use
  Company Number: US-ASTRAZENECA-2012SE43218

PATIENT
  Age: 80 Year
  Sex: Female

DRUGS (1)
  1. NEXIUM [Suspect]
     Route: 048

REACTIONS (11)
  - Gastric perforation [Unknown]
  - General physical health deterioration [Unknown]
  - Gastric disorder [Unknown]
  - Endometriosis [Unknown]
  - Pneumonia [Unknown]
  - Sinusitis [Unknown]
  - Ear infection [Unknown]
  - Nerve compression [Unknown]
  - Hypoacusis [Unknown]
  - Vomiting [Unknown]
  - Drug dose omission [Unknown]
